FAERS Safety Report 24325755 (Version 1)
Quarter: 2024Q3

REPORT INFORMATION
  Report Type: Spontaneous
  Country: JP (occurrence: JP)
  Receive Date: 20240917
  Receipt Date: 20240917
  Transmission Date: 20241017
  Serious: Yes (Death, Other)
  Sender: ALKEM
  Company Number: JP-ALKEM LABORATORIES LIMITED-JP-ALKEM-2024-20868

PATIENT
  Age: 50 Year
  Sex: Male

DRUGS (19)
  1. PREGABALIN [Suspect]
     Active Substance: PREGABALIN
     Indication: Insomnia
     Dosage: 150 MILLIGRAM, TABLET
     Route: 065
  2. PREGABALIN [Suspect]
     Active Substance: PREGABALIN
     Indication: Anxiety disorder
  3. PREGABALIN [Suspect]
     Active Substance: PREGABALIN
     Indication: Drug dependence
  4. ZOLPIDEM [Suspect]
     Active Substance: ZOLPIDEM TARTRATE
     Indication: Anxiety disorder
     Dosage: 10 MILLIGRAM, TABLET
     Route: 065
  5. ZOLPIDEM [Suspect]
     Active Substance: ZOLPIDEM TARTRATE
     Indication: Insomnia
  6. ZOLPIDEM [Suspect]
     Active Substance: ZOLPIDEM TARTRATE
     Indication: Drug dependence
  7. FLUNITRAZEPAM [Suspect]
     Active Substance: FLUNITRAZEPAM
     Indication: Insomnia
     Dosage: 2 MILLIGRAM, TABLET
     Route: 065
  8. FLUNITRAZEPAM [Suspect]
     Active Substance: FLUNITRAZEPAM
     Indication: Anxiety disorder
  9. FLUNITRAZEPAM [Suspect]
     Active Substance: FLUNITRAZEPAM
     Indication: Drug dependence
  10. BENZODIAZEPINE [Concomitant]
     Active Substance: BENZODIAZEPINE
     Indication: Product used for unknown indication
     Dosage: UNK
     Route: 065
  11. LOXOPROFEN [Concomitant]
     Active Substance: LOXOPROFEN
     Indication: Insomnia
     Dosage: UNK
     Route: 065
  12. LOXOPROFEN [Concomitant]
     Active Substance: LOXOPROFEN
     Indication: Anxiety disorder
  13. LOXOPROFEN [Concomitant]
     Active Substance: LOXOPROFEN
     Indication: Drug dependence
  14. SUVOREXANT [Concomitant]
     Active Substance: SUVOREXANT
     Indication: Insomnia
     Dosage: UNK
     Route: 065
  15. SUVOREXANT [Concomitant]
     Active Substance: SUVOREXANT
     Indication: Anxiety disorder
  16. SUVOREXANT [Concomitant]
     Active Substance: SUVOREXANT
     Indication: Drug dependence
  17. AMLODIPINE [Concomitant]
     Active Substance: AMLODIPINE BESYLATE
     Indication: Insomnia
     Dosage: UNK
     Route: 065
  18. AMLODIPINE [Concomitant]
     Active Substance: AMLODIPINE BESYLATE
     Indication: Anxiety disorder
  19. AMLODIPINE [Concomitant]
     Active Substance: AMLODIPINE BESYLATE
     Indication: Drug dependence

REACTIONS (4)
  - Pulmonary oedema [Fatal]
  - Overdose [Fatal]
  - Toxicity to various agents [Fatal]
  - Drug level increased [Fatal]
